FAERS Safety Report 4332555-X (Version None)
Quarter: 2004Q1

REPORT INFORMATION
  Report Type: 
  Country: None (occurrence: None)
  Receive Date: 20040330
  Receipt Date: 20040322
  Transmission Date: 20041129
  Serious: Yes (Hospitalization, Other)
  Sender: FDA-Public Use
  Company Number: 2004-03-0376

PATIENT
  Age: 59 Year
  Sex: Male

DRUGS (3)
  1. TEMODAL [Suspect]
     Indication: GLIOBLASTOMA
     Dosage: 250 MG QD ORAL
     Route: 048
     Dates: start: 20040202, end: 20040206
  2. DECADRON [Concomitant]
  3. DILANTIN [Concomitant]

REACTIONS (9)
  - DECREASED APPETITE [None]
  - GLIOBLASTOMA [None]
  - HAEMATOMA [None]
  - MALIGNANT NEOPLASM PROGRESSION [None]
  - NEUTROPENIA [None]
  - PANCYTOPENIA [None]
  - SEPTIC SHOCK [None]
  - THROMBOCYTOPENIA [None]
  - TREMOR [None]
